FAERS Safety Report 9120657 (Version 1)
Quarter: 2013Q1

REPORT INFORMATION
  Report Type: Spontaneous
  Country: US (occurrence: US)
  Receive Date: 20130226
  Receipt Date: 20130226
  Transmission Date: 20140127
  Serious: Yes (Other)
  Sender: FDA-Public Use
  Company Number: US-MERCK-1302USA010455

PATIENT
  Sex: Male

DRUGS (1)
  1. JANUMET [Suspect]
     Indication: TYPE 2 DIABETES MELLITUS
     Dosage: 500/50 MG QD
     Route: 048
     Dates: start: 201102

REACTIONS (4)
  - Pancreatitis chronic [Recovering/Resolving]
  - Pancreatitis [Recovering/Resolving]
  - Weight decreased [Recovering/Resolving]
  - Inappropriate schedule of drug administration [Unknown]
